FAERS Safety Report 4405450-5 (Version None)
Quarter: 2004Q3

REPORT INFORMATION
  Report Type: 
  Country: None (occurrence: None)
  Receive Date: 20040723
  Receipt Date: 20030827
  Transmission Date: 20050211
  Serious: No
  Sender: FDA-Public Use
  Company Number: US-GLAXOSMITHKLINE-A0423736A

PATIENT
  Age: 75 Year
  Sex: Female

DRUGS (3)
  1. AVANDIA [Suspect]
     Dosage: 8DROP PER DAY
     Route: 048
     Dates: start: 20030303
  2. GLUCOPHAGE [Concomitant]
     Dosage: 850MG TWICE PER DAY
  3. GLYNASE [Concomitant]
     Dosage: 3MG PER DAY

REACTIONS (3)
  - OEDEMA PERIPHERAL [None]
  - PAIN IN EXTREMITY [None]
  - WEIGHT INCREASED [None]
